FAERS Safety Report 13287200 (Version 1)
Quarter: 2017Q1

REPORT INFORMATION
  Report Type: Spontaneous
  Country: US (occurrence: US)
  Receive Date: 20170302
  Receipt Date: 20170302
  Transmission Date: 20170428
  Serious: No
  Sender: FDA-Public Use
  Company Number: US-PURDUE-USA-2017-0136199

PATIENT
  Age: 58 Year
  Sex: Female
  Weight: 77.98 kg

DRUGS (2)
  1. OXYCODONE/ ACETAMINOPHEN TABLETS [Suspect]
     Active Substance: ACETAMINOPHEN\OXYCODONE HYDROCHLORIDE
     Indication: BACK PAIN
     Dosage: UNK UNK (10/325 MG), Q4H
     Route: 048
     Dates: start: 20170110, end: 20170124
  2. IBUPROFEN. [Concomitant]
     Active Substance: IBUPROFEN
     Indication: PRODUCT USED FOR UNKNOWN INDICATION
     Dosage: 800 MG, UNK
     Route: 065

REACTIONS (7)
  - Nausea [Unknown]
  - Drug withdrawal syndrome [Unknown]
  - Euphoric mood [Unknown]
  - Hyperhidrosis [Unknown]
  - Drug ineffective [Unknown]
  - Feeling abnormal [Unknown]
  - Abnormal sensation in eye [Unknown]

NARRATIVE: CASE EVENT DATE: 201701
